FAERS Safety Report 8961557 (Version 4)
Quarter: 2013Q1

REPORT INFORMATION
  Report Type: Report from Study
  Country: US (occurrence: US)
  Receive Date: 20121212
  Receipt Date: 20130221
  Transmission Date: 20140127
  Serious: No
  Sender: FDA-Public Use
  Company Number: US-VERTEX PHARMACEUTICALS INC.-2012-025867

PATIENT
  Sex: Male
  Weight: 82 kg

DRUGS (5)
  1. VX-950 (TELAPREVIR) [Suspect]
     Indication: HEPATITIS C
     Dosage: 750 MG, TID
     Route: 048
     Dates: start: 20121201
  2. RIBAPAK [Suspect]
     Indication: HEPATITIS C
     Dosage: 600 MG AM, 400 MG PM
     Dates: start: 20121201
  3. RIBAPAK [Suspect]
     Dosage: 400 MG, UNK
     Dates: start: 20130110
  4. PEGASYS [Suspect]
     Indication: HEPATITIS C
     Dosage: 180 ?G, QW
     Route: 058
     Dates: start: 20121201
  5. AMLODIPINE [Concomitant]
     Dosage: 5 MG, QD

REACTIONS (9)
  - Palpitations [Unknown]
  - Exercise tolerance decreased [Unknown]
  - Decreased appetite [Unknown]
  - Dry skin [Unknown]
  - Fatigue [Unknown]
  - Rash [Unknown]
  - Anaemia [Unknown]
  - Pruritus [Unknown]
  - Anal pruritus [Unknown]
